FAERS Safety Report 8902782 (Version 2)
Quarter: 2013Q2

REPORT INFORMATION
  Report Type: Spontaneous
  Country: CZ (occurrence: CZ)
  Receive Date: 20121112
  Receipt Date: 20130610
  Transmission Date: 20140414
  Serious: Yes (Congenital Anomaly)
  Sender: FDA-Public Use
  Company Number: CZ-JNJFOC-20121104740

PATIENT
  Sex: 0

DRUGS (3)
  1. REMICADE [Suspect]
     Indication: FOETAL EXPOSURE DURING PREGNANCY
     Dosage: 350
     Route: 064
     Dates: start: 20090301, end: 20121030
  2. SALOFALK [Concomitant]
     Route: 065
     Dates: start: 20000101, end: 20121030
  3. LETROX [Concomitant]
     Route: 065
     Dates: start: 20090101, end: 20121030

REACTIONS (1)
  - Teratogenicity [Unknown]
